FAERS Safety Report 7445078-6 (Version None)
Quarter: 2011Q2

REPORT INFORMATION
  Report Type: 
  Country: None (occurrence: None)
  Receive Date: 20110429
  Receipt Date: 20110417
  Transmission Date: 20111010
  Serious: Yes (Other)
  Sender: FDA-Public Use
  Company Number: DZ-US-EMD SERONO, INC.-7054394

PATIENT
  Sex: Female
  Weight: 50 kg

DRUGS (1)
  1. REBIF [Suspect]
     Indication: MULTIPLE SCLEROSIS
     Route: 058

REACTIONS (6)
  - PURPURA [None]
  - TINEA INFECTION [None]
  - INJECTION SITE REACTION [None]
  - INFLUENZA LIKE ILLNESS [None]
  - SKIN NECROSIS [None]
  - RAYNAUD'S PHENOMENON [None]
